FAERS Safety Report 14721118 (Version 2)
Quarter: 2018Q2

REPORT INFORMATION
  Report Type: Report from Study
  Country: US (occurrence: US)
  Receive Date: 20180405
  Receipt Date: 20180413
  Transmission Date: 20180711
  Serious: Yes (Other)
  Sender: FDA-Public Use
  Company Number: US-JAZZ-2018-US-004989

PATIENT
  Age: 29 Year
  Sex: Female

DRUGS (30)
  1. TRAZODONE [Concomitant]
     Active Substance: TRAZODONE HYDROCHLORIDE
  2. FLUVOXAMINE MALEATE. [Concomitant]
     Active Substance: FLUVOXAMINE MALEATE
  3. PROZAC [Concomitant]
     Active Substance: FLUOXETINE HYDROCHLORIDE
  4. RETIN-A [Concomitant]
     Active Substance: TRETINOIN
  5. PROAIR HFA [Concomitant]
     Active Substance: ALBUTEROL SULFATE
  6. NORETHISTERONE [Concomitant]
     Active Substance: NORETHINDRONE
  7. ALLEGRA-D 24 HOUR [Concomitant]
     Active Substance: FEXOFENADINE HYDROCHLORIDE\PSEUDOEPHEDRINE HYDROCHLORIDE
  8. LIDOCAINE. [Concomitant]
     Active Substance: LIDOCAINE
  9. OMEPRAZOLE. [Concomitant]
     Active Substance: OMEPRAZOLE
  10. OXYCODONE HYDROCHLORIDE. [Concomitant]
     Active Substance: OXYCODONE HYDROCHLORIDE
  11. ALEVE [Concomitant]
     Active Substance: NAPROXEN SODIUM
  12. COLACE [Concomitant]
     Active Substance: DOCUSATE SODIUM
  13. HYOSCYAMINE. [Concomitant]
     Active Substance: HYOSCYAMINE
  14. XYREM [Suspect]
     Active Substance: SODIUM OXYBATE
     Indication: CATAPLEXY
  15. MAGNESIUM GLUCONATE [Concomitant]
     Active Substance: MAGNESIUM GLUCONATE
  16. MELATONIN [Concomitant]
     Active Substance: MELATONIN
  17. TYLENOL EXTRA STRENGTH [Concomitant]
     Active Substance: ACETAMINOPHEN
  18. ONDANSETRON [Concomitant]
     Active Substance: ONDANSETRON
  19. XYREM [Suspect]
     Active Substance: SODIUM OXYBATE
     Indication: NARCOLEPSY
     Dosage: 2 G, BID
     Route: 048
     Dates: start: 20180322, end: 2018
  20. ZINC CHELATE [Concomitant]
  21. BENZOYL PEROXIDE. [Concomitant]
     Active Substance: BENZOYL PEROXIDE
  22. CLONIDINE HCL [Concomitant]
     Active Substance: CLONIDINE HYDROCHLORIDE
  23. DIPROLENE AF [Concomitant]
     Active Substance: BETAMETHASONE DIPROPIONATE
  24. MODAFINIL. [Concomitant]
     Active Substance: MODAFINIL
  25. XARELTO [Concomitant]
     Active Substance: RIVAROXABAN
  26. ZANTAC [Concomitant]
     Active Substance: RANITIDINE HYDROCHLORIDE
  27. ABILIFY [Concomitant]
     Active Substance: ARIPIPRAZOLE
  28. MAXALT-MLT [Concomitant]
     Active Substance: RIZATRIPTAN BENZOATE
  29. OXYCODONE HYDROCHLORIDE W/OXYCODONE TEREPHTHA [Concomitant]
  30. TOPAMAX [Concomitant]
     Active Substance: TOPIRAMATE

REACTIONS (4)
  - Fatigue [Unknown]
  - Headache [Recovering/Resolving]
  - Dyspepsia [Unknown]
  - Self-injurious ideation [Recovered/Resolved]

NARRATIVE: CASE EVENT DATE: 20180322
